FAERS Safety Report 9168635 (Version 1)
Quarter: 2013Q1

REPORT INFORMATION
  Report Type: Spontaneous
  Country: GB (occurrence: None)
  Receive Date: 20130305
  Receipt Date: 20130305
  Transmission Date: 20140127
  Serious: Yes (Hospitalization)
  Sender: FDA-Public Use
  Company Number: 2013-00605

PATIENT
  Age: 62 Year
  Sex: Male

DRUGS (8)
  1. LOSARTAN [Suspect]
     Indication: HYPERTENSION
     Dates: start: 201206, end: 20130120
  2. DOXAZOSIN [Concomitant]
  3. DULOXETINE [Concomitant]
  4. LAMOTRIGINE [Concomitant]
  5. LITHIUM [Concomitant]
  6. QUETIAPINE [Concomitant]
  7. SIMVASTATIN [Concomitant]
  8. THYROXINE [Concomitant]

REACTIONS (4)
  - Back pain [None]
  - Renal impairment [None]
  - Drug prescribing error [None]
  - Condition aggravated [None]
